FAERS Safety Report 5123057-1 (Version None)
Quarter: 2006Q4

REPORT INFORMATION
  Report Type: 
  Country: None (occurrence: None)
  Receive Date: 20061005
  Receipt Date: 20060920
  Transmission Date: 20070319
  Serious: Yes (Hospitalization)
  Sender: FDA-Public Use
  Company Number: US200609005065

PATIENT
  Sex: Male

DRUGS (1)
  1. ZYPREXA [Suspect]
     Indication: DEPRESSION
     Dosage: 10 MG
     Dates: start: 20050401, end: 20060801

REACTIONS (11)
  - ABDOMINAL PAIN UPPER [None]
  - AKATHISIA [None]
  - CATATONIA [None]
  - GAIT DISTURBANCE [None]
  - HYPERSOMNIA [None]
  - INSOMNIA [None]
  - MASKED FACIES [None]
  - MUSCLE RIGIDITY [None]
  - NERVOUSNESS [None]
  - RESTLESSNESS [None]
  - STARING [None]
